FAERS Safety Report 18929290 (Version 3)
Quarter: 2021Q1

REPORT INFORMATION
  Report Type: Spontaneous
  Country: US (occurrence: US)
  Receive Date: 20210223
  Receipt Date: 20210317
  Transmission Date: 20210420
  Serious: No
  Sender: FDA-Public Use
  Company Number: US-SA-2021SA060021

PATIENT
  Age: 25 Year
  Sex: Male

DRUGS (2)
  1. CEREZYME [Suspect]
     Active Substance: IMIGLUCERASE
     Indication: GAUCHER^S DISEASE
     Dosage: 9600 U, QOW
     Route: 058
     Dates: start: 20171113, end: 201711
  2. CEREZYME [Suspect]
     Active Substance: IMIGLUCERASE
     Dosage: 9600 U, QOW
     Route: 041
     Dates: start: 201711

REACTIONS (2)
  - Product dose omission issue [Unknown]
  - Incorrect route of product administration [Unknown]

NARRATIVE: CASE EVENT DATE: 201711
